FAERS Safety Report 7568304-1 (Version None)
Quarter: 2011Q2

REPORT INFORMATION
  Report Type: 
  Country: None (occurrence: None)
  Receive Date: 20110623
  Receipt Date: 20110609
  Transmission Date: 20111010
  Serious: Yes (Hospitalization)
  Sender: FDA-Public Use
  Company Number: US-JNJFOC-20110605449

PATIENT
  Sex: Female
  Weight: 46 kg

DRUGS (4)
  1. REMICADE [Suspect]
     Indication: INFLAMMATORY BOWEL DISEASE
     Route: 042
     Dates: start: 20101122
  2. ANTIBIOTICS [Concomitant]
     Indication: INFLAMMATORY BOWEL DISEASE
     Route: 065
  3. REMICADE [Suspect]
     Route: 042
     Dates: start: 20110427
  4. PREDNISONE [Concomitant]
     Route: 065

REACTIONS (1)
  - COLITIS [None]
